FAERS Safety Report 25153414 (Version 1)
Quarter: 2025Q2

REPORT INFORMATION
  Report Type: Spontaneous
  Country: US (occurrence: US)
  Receive Date: 20250403
  Receipt Date: 20250403
  Transmission Date: 20250716
  Serious: Yes (Hospitalization)
  Sender: NOVITIUM PHARMA
  Company Number: US-NOVITIUMPHARMA-2025USNVP00793

PATIENT
  Age: 84 Year
  Sex: Female

DRUGS (3)
  1. DIGOXIN [Suspect]
     Active Substance: DIGOXIN
     Indication: Atrial fibrillation
  2. POSACONAZOLE [Concomitant]
     Active Substance: POSACONAZOLE
     Indication: Antifungal prophylaxis
  3. METOPROLOL [Concomitant]
     Active Substance: METOPROLOL
     Indication: Atrial fibrillation

REACTIONS (7)
  - Atrioventricular block second degree [Recovered/Resolved]
  - Xanthopsia [Recovered/Resolved]
  - Sinus bradycardia [Recovered/Resolved]
  - Nausea [Unknown]
  - Dizziness [Unknown]
  - Toxicity to various agents [Unknown]
  - Drug interaction [Unknown]
